FAERS Safety Report 13983755 (Version 4)
Quarter: 2017Q4

REPORT INFORMATION
  Report Type: Spontaneous
  Country: US (occurrence: US)
  Receive Date: 20170918
  Receipt Date: 20171125
  Transmission Date: 20180321
  Serious: No
  Sender: FDA-Public Use
  Company Number: PHEH2017US030032

PATIENT
  Sex: Male

DRUGS (1)
  1. EXELON PATCH [Suspect]
     Active Substance: RIVASTIGMINE
     Indication: PRODUCT USED FOR UNKNOWN INDICATION
     Dosage: 4.6 MG, QD (PATCH 5 (CM2), 9 MG RIVASTIGMINE BASE)
     Route: 062

REACTIONS (2)
  - Rash [Unknown]
  - Diarrhoea [Unknown]
